FAERS Safety Report 7147889-3 (Version None)
Quarter: 2010Q4

REPORT INFORMATION
  Report Type: 
  Country: None (occurrence: None)
  Receive Date: 20101209
  Receipt Date: 20101202
  Transmission Date: 20110411
  Serious: Yes (Other)
  Sender: FDA-Public Use
  Company Number: NL-JNJFOC-20101201338

PATIENT
  Sex: Male
  Weight: 100 kg

DRUGS (1)
  1. RISPERDAL [Suspect]
     Indication: ASPERGER'S DISORDER
     Route: 065

REACTIONS (2)
  - HYPOACUSIS [None]
  - MENIERE'S DISEASE [None]
